FAERS Safety Report 15346708 (Version 2)
Quarter: 2020Q3

REPORT INFORMATION
  Report Type: Report from Study
  Country: US (occurrence: US)
  Receive Date: 20180904
  Receipt Date: 20180911
  Transmission Date: 20201105
  Serious: Yes (Hospitalization)
  Sender: FDA-Public Use
  Company Number: US-ROCHE-2176862

PATIENT
  Age: 81 Year
  Sex: Female
  Weight: 49.89 kg

DRUGS (16)
  1. IPATASERTIB. [Suspect]
     Active Substance: IPATASERTIB
     Indication: BREAST CANCER METASTATIC
     Dosage: ON 11/AUG/2018, THE PATIENT RECEIVED MOST RECENT DOSE OF IPATASERTIB PRIOR TO EVENT ONSET.
     Route: 048
     Dates: start: 20180709
  2. ATEZOLIZUMAB. [Suspect]
     Active Substance: ATEZOLIZUMAB
     Indication: BREAST CANCER METASTATIC
     Dosage: ON 06/AUG/2018, THE PATIENT RECEIVED MOST RECENT DOSE OF ATEZOLIZUMAB PRIOR TO EVENT ONSET
     Route: 042
     Dates: start: 20180709
  3. PREDNISONE. [Concomitant]
     Active Substance: PREDNISONE
     Route: 048
     Dates: start: 20180815, end: 20180815
  4. ZOFRAN [Concomitant]
     Active Substance: ONDANSETRON HYDROCHLORIDE
     Indication: NAUSEA
     Route: 048
  5. PREDNISONE. [Concomitant]
     Active Substance: PREDNISONE
     Route: 048
     Dates: start: 20180816, end: 20180816
  6. NORMAL SALINE [Concomitant]
     Active Substance: SODIUM CHLORIDE
     Indication: DEHYDRATION
     Route: 042
     Dates: start: 20180813, end: 20180814
  7. PEPCID (UNITED STATES) [Concomitant]
     Dosage: GI UPSET FROM DEXAMETHASONE
     Route: 048
     Dates: start: 20180723
  8. ATENOLOL. [Concomitant]
     Active Substance: ATENOLOL
     Indication: HYPERTENSION
     Route: 048
  9. OXYCODONE [Concomitant]
     Active Substance: OXYCODONE
     Indication: PROCEDURAL PAIN
     Route: 048
     Dates: start: 20180628
  10. PREDNISONE. [Concomitant]
     Active Substance: PREDNISONE
     Indication: DEHYDRATION
     Route: 048
     Dates: start: 20180812, end: 20180814
  11. FAMOTIDINE. [Concomitant]
     Active Substance: FAMOTIDINE
     Indication: GASTROOESOPHAGEAL REFLUX DISEASE
     Route: 048
  12. CHLORTHALIDONE. [Concomitant]
     Active Substance: CHLORTHALIDONE
     Dosage: DIURETIC
     Route: 065
  13. AMLODIPINE [Concomitant]
     Active Substance: AMLODIPINE BESYLATE
     Indication: HYPERTENSION
     Route: 048
  14. ACETAMINOPHEN. [Concomitant]
     Active Substance: ACETAMINOPHEN
     Indication: PROCEDURAL PAIN
     Route: 048
     Dates: start: 20180628
  15. PREDNISONE. [Concomitant]
     Active Substance: PREDNISONE
     Route: 048
     Dates: start: 20180817, end: 20180817
  16. MEDROL [Concomitant]
     Active Substance: METHYLPREDNISOLONE
     Indication: LIP SWELLING
     Route: 048
     Dates: start: 20180723, end: 20180727

REACTIONS (1)
  - Alveolitis [Not Recovered/Not Resolved]

NARRATIVE: CASE EVENT DATE: 20180827
